FAERS Safety Report 5073772-3 (Version None)
Quarter: 2006Q3

REPORT INFORMATION
  Report Type: 
  Country: None (occurrence: None)
  Receive Date: 20060803
  Receipt Date: 20060721
  Transmission Date: 20061208
  Serious: Yes (Hospitalization)
  Sender: FDA-Public Use
  Company Number: 2006069607

PATIENT
  Age: 79 Year
  Sex: Female
  Weight: 78.8 kg

DRUGS (1)
  1. SU-01,248  (SUNITINIB MALATE) [Suspect]
     Indication: GASTROINTESTINAL STROMAL TUMOUR
     Dosage: 50 MG (50 MG, QD - INTERVAL: 28 DAYS/ 14 DAYS OFF), ORAL
     Route: 048
     Dates: start: 20060529, end: 20060601

REACTIONS (3)
  - CEREBRAL HAEMORRHAGE [None]
  - CEREBRAL INFARCTION [None]
  - FALL [None]
